FAERS Safety Report 4893634-1 (Version None)
Quarter: 2006Q1

REPORT INFORMATION
  Report Type: 
  Country: None (occurrence: None)
  Receive Date: 20060124
  Receipt Date: 20060111
  Transmission Date: 20060701
  Serious: Yes (Hospitalization)
  Sender: FDA-Public Use
  Company Number: 2005160254

PATIENT
  Age: 57 Year
  Sex: Female
  Weight: 65 kg

DRUGS (4)
  1. LIPITOR [Suspect]
     Indication: ILL-DEFINED DISORDER
     Dosage: 20 MG (20 MG, 1 IN 1 D), ORAL
     Route: 048
     Dates: start: 20031201, end: 20051117
  2. PLAVIX [Concomitant]
  3. DILTIAZEM HYDROCHLORIDE [Concomitant]
  4. ASCAL (ACETYLSALICYLATE CALCIUM) [Concomitant]

REACTIONS (5)
  - ACTIVITIES OF DAILY LIVING IMPAIRED [None]
  - ANGIOPLASTY [None]
  - CORONARY ARTERIAL STENT INSERTION [None]
  - ILL-DEFINED DISORDER [None]
  - MOVEMENT DISORDER [None]
